FAERS Safety Report 9326357 (Version 2)
Quarter: 2013Q2

REPORT INFORMATION
  Report Type: Spontaneous
  Country: FR (occurrence: FR)
  Receive Date: 20130604
  Receipt Date: 20130610
  Transmission Date: 20140414
  Serious: Yes (Death, Hospitalization)
  Sender: FDA-Public Use
  Company Number: FR-FRI-1000045572

PATIENT
  Age: 43 Year
  Sex: Female

DRUGS (9)
  1. MILNACIPRAN [Suspect]
     Dosage: 100 MG
     Route: 048
     Dates: end: 20121212
  2. MILNACIPRAN [Suspect]
     Dosage: 50 MG
     Route: 048
     Dates: start: 20121213, end: 20121214
  3. LOXAPAC [Suspect]
     Indication: AGITATION
     Dosage: 150 DROPS
     Route: 048
     Dates: start: 20121214
  4. XEROQUEL [Suspect]
     Dosage: 450 MG
     Route: 048
     Dates: end: 20121213
  5. ZYPREXA [Suspect]
     Dosage: 20 MG
     Route: 048
     Dates: start: 20121214
  6. TEMESTA [Suspect]
     Dosage: 1.25 MG AM, 2.5 MG PM
     Route: 048
  7. TEMESTA [Suspect]
     Dosage: 2.5 MG
     Dates: start: 20121214
  8. SPASFON LYOC [Concomitant]
     Dosage: 160 MG AS NEEDED
  9. DAFALGAN [Concomitant]
     Dosage: 1 G AS NEEDED (MAX 3 G DAILY)

REACTIONS (5)
  - Status epilepticus [Fatal]
  - Pneumonia aspiration [Fatal]
  - Dysphagia [Fatal]
  - Abnormal behaviour [Unknown]
  - Cardio-respiratory arrest [Fatal]
